FAERS Safety Report 18893092 (Version 1)
Quarter: 2021Q1

REPORT INFORMATION
  Report Type: Spontaneous
  Country: NO (occurrence: NO)
  Receive Date: 20210215
  Receipt Date: 20210215
  Transmission Date: 20210420
  Serious: Yes (Disabling)
  Sender: FDA-Public Use
  Company Number: NO-SA-2021SA045183

PATIENT
  Age: 30 Year
  Sex: Female

DRUGS (1)
  1. MYOZYME [Suspect]
     Active Substance: ALGLUCOSIDASE ALFA
     Indication: GLYCOGEN STORAGE DISEASE TYPE II
     Dosage: UNK
     Route: 041
     Dates: start: 2018

REACTIONS (5)
  - Glycogen storage disease type II [Unknown]
  - Pyrexia [Unknown]
  - Discomfort [Unknown]
  - Disease progression [Unknown]
  - Heart rate increased [Unknown]
